FAERS Safety Report 7304772-8 (Version None)
Quarter: 2011Q1

REPORT INFORMATION
  Report Type: 
  Country: None (occurrence: None)
  Receive Date: 20110222
  Receipt Date: 20110217
  Transmission Date: 20110831
  Serious: No
  Sender: FDA-Public Use
  Company Number: US-PFIZER INC-2011035793

PATIENT
  Sex: Female

DRUGS (9)
  1. NEURONTIN [Suspect]
     Indication: CONVULSION
     Dosage: 1ML SOLUTION IN MORNING AND 3ML SOLUTION AT NIGHT
     Dates: start: 20100713
  2. AMIODARONE [Concomitant]
     Dosage: 200 MG, 1X/DAY
  3. PLAVIX [Concomitant]
     Dosage: 75 MG, 1X/DAY
  4. NORVASC [Concomitant]
     Dosage: 10 MG, 1X/DAY
  5. FOSAMAX [Concomitant]
     Dosage: 70 MG, WEEKLY
  6. WARFARIN [Concomitant]
     Dosage: 4 MG, 1X/DAY
  7. METHOTREXATE [Concomitant]
     Dosage: 3 TABLETS, WEEKLY
  8. COREG [Concomitant]
     Dosage: 3.125 MG, 2X/DAY
  9. ZOCOR [Concomitant]
     Dosage: 20 MG, 1X/DAY

REACTIONS (2)
  - THROAT IRRITATION [None]
  - PRODUCT TASTE ABNORMAL [None]
